FAERS Safety Report 8384244-2 (Version None)
Quarter: 2012Q2

REPORT INFORMATION
  Report Type: 
  Country: None (occurrence: None)
  Receive Date: 20120524
  Receipt Date: 20120515
  Transmission Date: 20120825
  Serious: Yes (Hospitalization, Disabling)
  Sender: FDA-Public Use
  Company Number: US-MERCK-0805USA00914

PATIENT
  Age: 78 Year
  Sex: Female
  Weight: 99 kg

DRUGS (5)
  1. TENORMIN [Concomitant]
     Indication: HYPERTENSION
     Route: 065
     Dates: start: 20000101, end: 20060101
  2. AMARYL [Concomitant]
     Indication: DIABETES MELLITUS
     Route: 065
     Dates: start: 20000101, end: 20060101
  3. FOSAMAX [Suspect]
     Indication: SENILE OSTEOPOROSIS
     Route: 048
     Dates: start: 20010201, end: 20060515
  4. [THERAPY UNSPECIFIED] [Concomitant]
     Indication: HYPERTENSION
     Route: 065
     Dates: start: 19690101
  5. ATACAND [Concomitant]
     Indication: HYPERTENSION
     Route: 065
     Dates: start: 20000101, end: 20060101

REACTIONS (19)
  - ACTINOMYCOSIS [None]
  - BLOOD PRESSURE ORTHOSTATIC [None]
  - PULMONARY HYPERTENSION [None]
  - NAUSEA [None]
  - HYPOAESTHESIA [None]
  - JAW FRACTURE [None]
  - SPINAL OSTEOARTHRITIS [None]
  - ARTHRALGIA [None]
  - ABDOMINAL DISCOMFORT [None]
  - TOOTH DISORDER [None]
  - OSTEONECROSIS OF JAW [None]
  - DIZZINESS [None]
  - ADVERSE DRUG REACTION [None]
  - DECREASED APPETITE [None]
  - PRESYNCOPE [None]
  - OSTEOMYELITIS [None]
  - TRANSIENT ISCHAEMIC ATTACK [None]
  - FALL [None]
  - HYPERCALCAEMIA [None]
